FAERS Safety Report 23721475 (Version 7)
Quarter: 2025Q1

REPORT INFORMATION
  Report Type: Report from Study
  Country: US (occurrence: US)
  Receive Date: 20240409
  Receipt Date: 20250318
  Transmission Date: 20250409
  Serious: Yes (Other)
  Sender: ABBVIE
  Company Number: US-ABBVIE-5709610

PATIENT
  Age: 74 Year
  Sex: Female

DRUGS (4)
  1. RINVOQ [Suspect]
     Active Substance: UPADACITINIB
     Indication: Rheumatoid arthritis
     Route: 048
     Dates: start: 20220101
  2. RINVOQ [Suspect]
     Active Substance: UPADACITINIB
     Indication: Rheumatoid arthritis
     Route: 048
     Dates: start: 20220401
  3. RINVOQ [Suspect]
     Active Substance: UPADACITINIB
     Indication: Rheumatoid arthritis
     Route: 048
     Dates: start: 20220726
  4. RINVOQ [Suspect]
     Active Substance: UPADACITINIB
     Indication: Rheumatoid arthritis
     Route: 048

REACTIONS (12)
  - Blindness unilateral [Not Recovered/Not Resolved]
  - Lung neoplasm malignant [Recovering/Resolving]
  - Retinal transplant [Recovering/Resolving]
  - Open globe injury [Unknown]
  - Macular degeneration [Unknown]
  - Cataract [Unknown]
  - Onychoclasis [Unknown]
  - Psoriasis [Unknown]
  - Headache [Not Recovered/Not Resolved]
  - Fall [Unknown]
  - Head injury [Unknown]
  - Traumatic pain [Not Recovered/Not Resolved]

NARRATIVE: CASE EVENT DATE: 20230601
